FAERS Safety Report 8378368-3 (Version None)
Quarter: 2012Q2

REPORT INFORMATION
  Report Type: 
  Country: None (occurrence: None)
  Receive Date: 20120522
  Receipt Date: 20120518
  Transmission Date: 20120825
  Serious: Yes (Death, Hospitalization)
  Sender: FDA-Public Use
  Company Number: US-CELGENEUS-163-21880-11120355

PATIENT
  Sex: Male

DRUGS (13)
  1. TYLENOL [Concomitant]
     Indication: CHILLS
  2. SYMBICORT [Concomitant]
     Dosage: 2 PUFFS
     Route: 065
  3. DEMEROL [Concomitant]
     Indication: CHILLS
  4. SPIRIVA [Concomitant]
     Route: 065
  5. REVLIMID [Suspect]
     Indication: MYELODYSPLASTIC SYNDROME
     Dosage: 10 MILLIGRAM
     Route: 048
     Dates: start: 20110920
  6. PROCRIT [Concomitant]
     Route: 065
  7. DEMEROL [Concomitant]
     Dosage: 50 MILLIGRAM
     Route: 065
  8. TYLENOL [Concomitant]
     Dosage: 650 MILLIGRAM
     Route: 048
  9. ATIVAN [Concomitant]
     Dosage: 1 MILLIGRAM
     Route: 060
  10. PERCOCET [Concomitant]
     Dosage: 5/325
     Route: 065
  11. REVLIMID [Suspect]
     Dosage: 5 MILLIGRAM
     Route: 048
     Dates: start: 20111001
  12. ALBUTEROL [Concomitant]
     Dosage: 2 PUFFS
     Route: 045
  13. OXYGEN [Concomitant]
     Indication: HOSPICE CARE
     Dosage: 2-4 LITERS
     Route: 065

REACTIONS (3)
  - FEBRILE NEUTROPENIA [None]
  - PANCYTOPENIA [None]
  - INFECTION [None]
